FAERS Safety Report 9880615 (Version 1)
Quarter: 2014Q1

REPORT INFORMATION
  Report Type: Spontaneous
  Country: LB (occurrence: LB)
  Receive Date: 20140207
  Receipt Date: 20140207
  Transmission Date: 20141002
  Serious: Yes (Other)
  Sender: FDA-Public Use
  Company Number: LB-JNJFOC-20140200691

PATIENT
  Age: 40 Year
  Sex: Male

DRUGS (1)
  1. REMICADE [Suspect]
     Indication: CROHN^S DISEASE
     Dosage: PATIENT HAD BEEN TAKING FOR 5 YEARS
     Route: 042

REACTIONS (2)
  - Pancreatitis [Recovered/Resolved]
  - Crohn^s disease [Recovered/Resolved]
